FAERS Safety Report 19421028 (Version 3)
Quarter: 2023Q2

REPORT INFORMATION
  Report Type: Report from Study
  Country: US (occurrence: None)
  Receive Date: 20210616
  Receipt Date: 20230608
  Transmission Date: 20230722
  Serious: Yes (Other)
  Sender: FDA-Public Use
  Company Number: US-ROCHE-2727698

PATIENT
  Age: 63 Year
  Sex: Female
  Weight: 78.4 kg

DRUGS (9)
  1. BEVACIZUMAB [Suspect]
     Active Substance: BEVACIZUMAB
     Indication: Fallopian tube cancer
     Dosage: EVERY OTHER WEEK,  DATE OF ADMINISTERATION: 01/JUN/2020?TOTAL DOSE ADMINISTERED THIS COURSE (DOSE)-
     Route: 042
     Dates: start: 20200224
  2. BEVACIZUMAB [Suspect]
     Active Substance: BEVACIZUMAB
     Indication: Ovarian cancer
  3. ANETUMAB RAVTANSINE [Suspect]
     Active Substance: ANETUMAB RAVTANSINE
     Indication: Product used for unknown indication
     Dosage: 2.2MG/KG, ONGOING: NO, DATE OF ADMINISTERATION: 01/JUN/2020?TOTAL DOSE ADMINISTERED THIS COURSE- 510
     Route: 042
     Dates: start: 20200224
  4. ARTIFICIAL TEARS [PROPYLENE GLYCOL] [Concomitant]
  5. CYMBALTA [Concomitant]
     Active Substance: DULOXETINE HYDROCHLORIDE
     Dosage: PER DAY FOR 7 DAYS.
     Dates: start: 20200518
  6. CYMBALTA [Concomitant]
     Active Substance: DULOXETINE HYDROCHLORIDE
  7. TRAMADOL [Concomitant]
     Active Substance: TRAMADOL
     Dosage: FOR HER NEUROPATHY SYMPTOMS.
  8. MAXITROL [Concomitant]
     Active Substance: DEXAMETHASONE\NEOMYCIN SULFATE\POLYMYXIN B SULFATE
     Dosage: OINTMENT
     Dates: start: 20200414
  9. PREDNISOLONE ACETATE [Concomitant]
     Active Substance: PREDNISOLONE ACETATE
     Dosage: 1% SUSPENSION, 1 DROP

REACTIONS (4)
  - Peripheral sensory neuropathy [Unknown]
  - Dry eye [Unknown]
  - Eye disorder [Unknown]
  - Small intestinal obstruction [Unknown]

NARRATIVE: CASE EVENT DATE: 20200608
